FAERS Safety Report 9644642 (Version 2)
Quarter: 2013Q4

REPORT INFORMATION
  Report Type: Report from Study
  Country: FR (occurrence: FR)
  Receive Date: 20131025
  Receipt Date: 20131030
  Transmission Date: 20140711
  Serious: Yes (Other)
  Sender: FDA-Public Use
  Company Number: FR-JNJFOC-20131010440

PATIENT
  Sex: 0

DRUGS (6)
  1. INTELENCE [Suspect]
     Indication: HIV INFECTION
     Route: 048
  2. PREZISTA [Suspect]
     Indication: PRODUCT USED FOR UNKNOWN INDICATION
     Route: 048
  3. TRUVADA [Suspect]
     Indication: PRODUCT USED FOR UNKNOWN INDICATION
     Route: 065
  4. NORVIR [Suspect]
     Indication: PRODUCT USED FOR UNKNOWN INDICATION
     Route: 065
  5. KIVEXA [Suspect]
     Indication: OSTEOPENIA
     Route: 065
  6. STEROGYL [Suspect]
     Indication: PRODUCT USED FOR UNKNOWN INDICATION
     Route: 065

REACTIONS (8)
  - Rash [Recovering/Resolving]
  - Blood blister [Recovering/Resolving]
  - Torticollis [Recovered/Resolved]
  - Diarrhoea [Unknown]
  - Stress [Unknown]
  - Headache [Unknown]
  - Laryngitis [Unknown]
  - Pruritus [Recovered/Resolved]
